FAERS Safety Report 9563877 (Version 2)
Quarter: 2013Q3

REPORT INFORMATION
  Report Type: Spontaneous
  Country: DE (occurrence: DE)
  Receive Date: 20130927
  Receipt Date: 20130927
  Transmission Date: 20140515
  Serious: Yes (Other)
  Sender: FDA-Public Use
  Company Number: DE-ROCHE-1261184

PATIENT
  Age: 40 Year
  Sex: Female
  Weight: 88 kg

DRUGS (6)
  1. PERJETA [Suspect]
     Indication: BREAST CANCER METASTATIC
     Dosage: LOADING DOSE. IN 250 ML SODIUM CHLORIDE OVER 60 MIN
     Route: 042
     Dates: start: 20130731, end: 20130731
  2. PERJETA [Suspect]
     Dosage: MAINTENANCE DOSE?IN 250 ML SODIUM CHLORIDE OVER 60 MIN
     Route: 042
  3. HERCEPTIN [Suspect]
     Indication: BREAST CANCER METASTATIC
     Dosage: IN 250 ML SODIUM CHLORIDE OVER 90 MIN
     Route: 042
     Dates: start: 20130731
  4. TAXOTERE [Suspect]
     Indication: BREAST CANCER METASTATIC
     Dosage: IN 250 ML SODIUM CHLORIDE OVER 60 MIN
     Route: 042
     Dates: start: 20130801
  5. ZOFRAN [Concomitant]
     Dosage: IN 100 ML SODIUM CHLORIDE OVER 30 MIN
     Route: 042
     Dates: start: 20130801
  6. DEXAMETHASONE [Concomitant]
     Indication: PREMEDICATION
     Route: 042
     Dates: start: 20130731

REACTIONS (6)
  - Mucosal inflammation [Recovered/Resolved]
  - Skin reaction [Recovered/Resolved]
  - Rash [Recovered/Resolved]
  - Mucosal dryness [Unknown]
  - Diarrhoea [Unknown]
  - Mucosal haemorrhage [Unknown]
